FAERS Safety Report 13706375 (Version 2)
Quarter: 2017Q3

REPORT INFORMATION
  Report Type: Spontaneous
  Country: US (occurrence: US)
  Receive Date: 20170630
  Receipt Date: 20170907
  Transmission Date: 20171127
  Serious: Yes (Other)
  Sender: FDA-Public Use
  Company Number: US-GLAXOSMITHKLINE-US2017100456

PATIENT
  Sex: Female
  Weight: 79.82 kg

DRUGS (1)
  1. ADVAIR DISKUS [Suspect]
     Active Substance: FLUTICASONE PROPIONATE\SALMETEROL XINAFOATE
     Indication: CHRONIC OBSTRUCTIVE PULMONARY DISEASE
     Dosage: 1 PUFF(S), BID
     Route: 055
     Dates: start: 20160115

REACTIONS (3)
  - Cerebrovascular accident [Recovering/Resolving]
  - Dysphonia [Not Recovered/Not Resolved]
  - Arterial repair [Unknown]

NARRATIVE: CASE EVENT DATE: 2016
